FAERS Safety Report 6714115-6 (Version None)
Quarter: 2010Q2

REPORT INFORMATION
  Report Type: 
  Country: None (occurrence: None)
  Receive Date: 20100506
  Receipt Date: 20100423
  Transmission Date: 20101027
  Serious: Yes (Hospitalization, Disabling)
  Sender: FDA-Public Use
  Company Number: GB-WATSON-2010-02362

PATIENT

DRUGS (4)
  1. LAMOTRIGINE [Suspect]
     Indication: PARTIAL SEIZURES
     Dosage: 50 MG, BID
     Route: 048
     Dates: start: 20091015, end: 20100120
  2. CITALOPRAM HYDROBROMIDE [Concomitant]
     Indication: DEPRESSION
     Dosage: 20 MG, UNK
     Route: 048
  3. DONEPEZIL HCL [Concomitant]
     Indication: DEMENTIA
     Dosage: 10 MG, UNK
     Route: 048
  4. WARFARIN [Concomitant]
     Indication: DEEP VEIN THROMBOSIS
     Dosage: UNK
     Route: 048

REACTIONS (6)
  - ASTHENIA [None]
  - BLOOD CREATINE PHOSPHOKINASE INCREASED [None]
  - FACIAL PARESIS [None]
  - FALL [None]
  - HIP FRACTURE [None]
  - MYOPATHY [None]
